FAERS Safety Report 10262794 (Version 2)
Quarter: 2014Q2

REPORT INFORMATION
  Report Type: Report from Study
  Country: US (occurrence: US)
  Receive Date: 20140626
  Receipt Date: 20140626
  Transmission Date: 20141212
  Serious: Yes (Other)
  Sender: FDA-Public Use
  Company Number: US-MYLANLABS-2013S1016961

PATIENT
  Age: 47 Year
  Sex: Female

DRUGS (5)
  1. CLOZAPINE TABLETS [Suspect]
     Indication: SCHIZOPHRENIA, PARANOID TYPE
     Dates: start: 20110830, end: 2013
  2. SEROQUEL [Concomitant]
  3. VISTARIL [Concomitant]
  4. DEPAKOTE [Concomitant]
  5. TOPAMAX [Concomitant]

REACTIONS (1)
  - Granulocytopenia [Not Recovered/Not Resolved]
